FAERS Safety Report 14183678 (Version 2)
Quarter: 2017Q4

REPORT INFORMATION
  Report Type: Spontaneous
  Country: GB (occurrence: GB)
  Receive Date: 20171113
  Receipt Date: 20171212
  Transmission Date: 20180321
  Serious: No
  Sender: FDA-Public Use
  Company Number: GB-BIOVITRUM-2017GB1064

PATIENT
  Age: 9 Year
  Sex: Female
  Weight: 29.5 kg

DRUGS (2)
  1. KINERET [Suspect]
     Active Substance: ANAKINRA
     Indication: HISTIOCYTOSIS HAEMATOPHAGIC
     Dosage: 12 MG/KG/DAY (354 MG/DAY). INFUSION FOR 24 HOURS.
     Dates: start: 20171030
  2. KINERET [Suspect]
     Active Substance: ANAKINRA
     Dosage: 48 MG/KG/DAY AS A CONTINUOUS INFUSION AS THE MAXIMUM DOSE FOR 3 DAYS BEFORE REDUCING IT BACK DOWN.

REACTIONS (2)
  - Off label use [Unknown]
  - Overdose [Not Recovered/Not Resolved]
